FAERS Safety Report 6950046-4 (Version None)
Quarter: 2010Q3

REPORT INFORMATION
  Report Type: 
  Country: None (occurrence: None)
  Receive Date: 20100828
  Receipt Date: 20100122
  Transmission Date: 20110219
  Serious: No
  Sender: FDA-Public Use
  Company Number: US-ABBOTT-10P-163-0622367-00

PATIENT
  Age: 45 Year
  Sex: Male
  Weight: 88.53 kg

DRUGS (5)
  1. NIASPAN [Suspect]
     Indication: BLOOD CHOLESTEROL INCREASED
     Dosage: AT BEDTIME
     Route: 048
  2. METOCYCLINE [Concomitant]
     Indication: ROSACEA
  3. NEXIUM [Concomitant]
     Indication: GASTROOESOPHAGEAL REFLUX DISEASE
  4. XYZAL [Concomitant]
     Indication: HYPERSENSITIVITY
  5. ASPIRIN [Concomitant]
     Indication: PRODUCT USED FOR UNKNOWN INDICATION
     Dosage: DAILY WITH NIASPAN THERAPY
     Route: 048

REACTIONS (5)
  - ASTHENIA [None]
  - BLEPHAROSPASM [None]
  - HOT FLUSH [None]
  - PARAESTHESIA [None]
  - PRURITUS [None]
